FAERS Safety Report 8518760-7 (Version None)
Quarter: 2012Q3

REPORT INFORMATION
  Report Type: 
  Country: None (occurrence: None)
  Receive Date: 20120718
  Receipt Date: 20120712
  Transmission Date: 20120928
  Serious: Yes (Other)
  Sender: FDA-Public Use
  Company Number: PHEH2012US013948

PATIENT
  Sex: Male

DRUGS (15)
  1. LOTREL [Concomitant]
  2. OXYGEN [Concomitant]
  3. ZINC SULFATE [Concomitant]
  4. SPIRIVA [Concomitant]
  5. NAPROXEN [Concomitant]
  6. VITAMIN B6 [Concomitant]
  7. ZOMETA [Suspect]
     Indication: METASTASES TO BONE
     Dosage: 4 MG, EVERY 4 WEEK
     Route: 042
     Dates: start: 20120613
  8. ASPIRIN [Concomitant]
  9. ASCORBIC ACID [Concomitant]
  10. LASIX [Concomitant]
  11. FLONASE [Concomitant]
  12. MAGNESIUM SULFATE [Concomitant]
  13. ZOMETA [Suspect]
     Dosage: 4 MG, EVERY 4 WEEK
     Route: 042
     Dates: end: 20120711
  14. AVODART [Concomitant]
  15. VITAMIN E [Concomitant]

REACTIONS (3)
  - VISCERAL PAIN [None]
  - INFLUENZA LIKE ILLNESS [None]
  - PLEURISY [None]
